FAERS Safety Report 9202645 (Version 2)
Quarter: 2013Q2

REPORT INFORMATION
  Report Type: Spontaneous
  Country: US (occurrence: US)
  Receive Date: 20130401
  Receipt Date: 20130424
  Transmission Date: 20140414
  Serious: Yes (Other)
  Sender: FDA-Public Use
  Company Number: PHHY2013US030410

PATIENT
  Age: 65 Year
  Sex: Male

DRUGS (2)
  1. BUFFERIN REGULAR STRENGTH [Suspect]
     Route: 048
  2. CELEXA [Concomitant]
     Indication: DEPRESSION
     Dosage: 20 MG, QD
     Dates: start: 201201

REACTIONS (5)
  - Colon cancer [Unknown]
  - Cystitis [Recovered/Resolved]
  - Urinary tract infection [Recovered/Resolved]
  - Urine abnormality [Unknown]
  - Incorrect drug administration duration [Unknown]
